FAERS Safety Report 12931462 (Version 1)
Quarter: 2016Q4

REPORT INFORMATION
  Report Type: Spontaneous
  Country: JP (occurrence: JP)
  Receive Date: 20161110
  Receipt Date: 20161110
  Transmission Date: 20170207
  Serious: Yes (Other)
  Sender: FDA-Public Use
  Company Number: JP-JNJFOC-20161104675

PATIENT

DRUGS (2)
  1. INFLIXIMAB, RECOMBINANT [Suspect]
     Active Substance: INFLIXIMAB
     Indication: CROHN^S DISEASE
     Route: 042
  2. ADALIMUMAB [Suspect]
     Active Substance: ADALIMUMAB
     Indication: CROHN^S DISEASE
     Route: 065

REACTIONS (22)
  - Leukapheresis [Unknown]
  - Anaemia [Unknown]
  - Treatment failure [Unknown]
  - Infection parasitic [Unknown]
  - Adverse event [Unknown]
  - Surgery [Unknown]
  - Gastrointestinal infection [Unknown]
  - Connective tissue disorder [Unknown]
  - Injury [Unknown]
  - Laboratory test abnormal [Unknown]
  - Fungal infection [Unknown]
  - Poisoning [Unknown]
  - Endocrine disorder [Unknown]
  - Gastrointestinal disorder [Unknown]
  - Malnutrition [Unknown]
  - Skin disorder [Unknown]
  - Crohn^s disease [Unknown]
  - Urogenital disorder [Unknown]
  - Respiratory disorder [Unknown]
  - Infection [Unknown]
  - Metabolic disorder [Unknown]
  - Musculoskeletal disorder [Unknown]
